FAERS Safety Report 23814925 (Version 2)
Quarter: 2024Q3

REPORT INFORMATION
  Report Type: Spontaneous
  Country: US (occurrence: US)
  Receive Date: 20240503
  Receipt Date: 20240731
  Transmission Date: 20241016
  Serious: No
  Sender: AMGEN
  Company Number: US-AMGEN-USASP2024087754

PATIENT
  Age: 75 Year
  Sex: Female

DRUGS (1)
  1. REPATHA [Suspect]
     Active Substance: EVOLOCUMAB
     Indication: Blood cholesterol increased
     Dosage: 420 MILLIGRAM, QMO
     Route: 065

REACTIONS (5)
  - Product preparation error [Unknown]
  - Device difficult to use [Unknown]
  - Drug dose omission by device [Unknown]
  - Lack of injection site rotation [Unknown]
  - Device use error [Unknown]

NARRATIVE: CASE EVENT DATE: 20240501
